FAERS Safety Report 19740154 (Version 5)
Quarter: 2021Q3

REPORT INFORMATION
  Report Type: Report from Study
  Country: None (occurrence: ES)
  Receive Date: 20210823
  Receipt Date: 20210929
  Transmission Date: 20211014
  Serious: Yes (Hospitalization)
  Sender: FDA-Public Use
  Company Number: ES-ABBVIE-21K-144-4049329-00

PATIENT
  Age: 78 Year
  Sex: Male
  Weight: 95 kg

DRUGS (7)
  1. DUODOPA [Suspect]
     Active Substance: CARBIDOPA\LEVODOPA
     Dosage: CONTINUOUS DOSE DECREASED TO 6.5 ML / H.
     Route: 050
     Dates: start: 20210819, end: 20210819
  2. DUODOPA [Suspect]
     Active Substance: CARBIDOPA\LEVODOPA
     Dosage: CONTINUOUS DOSE INCREASED TO 5.5 ML/H
     Route: 050
     Dates: start: 20210823, end: 202108
  3. DUODOPA [Suspect]
     Active Substance: CARBIDOPA\LEVODOPA
     Indication: PARKINSON^S DISEASE
     Route: 050
     Dates: start: 20170317, end: 20210819
  4. SINTROM [Concomitant]
     Active Substance: ACENOCOUMAROL
     Indication: ANTICOAGULANT THERAPY
     Route: 048
     Dates: end: 20210819
  5. DUODOPA [Suspect]
     Active Substance: CARBIDOPA\LEVODOPA
     Dosage: MORNING DOSE 20 ML; CONTINUOUS DOSE 6.8 ML/H; EXTRA DOSE 5.5 M
     Route: 050
     Dates: start: 202108
  6. DUODOPA [Suspect]
     Active Substance: CARBIDOPA\LEVODOPA
     Dosage: CONTINUOUS DOSE DECREASED TO 6.2 ML / H
     Route: 050
     Dates: start: 20210819, end: 20210820
  7. DUODOPA [Suspect]
     Active Substance: CARBIDOPA\LEVODOPA
     Dosage: CONTINUOUS DOSE DECREASED TO 5.9 ML / H
     Route: 050
     Dates: start: 20210820, end: 20210823

REACTIONS (6)
  - Hyperkinesia [Recovered/Resolved]
  - Agitation [Recovered/Resolved]
  - Hip fracture [Recovered/Resolved]
  - Hip fracture [Recovered/Resolved]
  - Pain [Unknown]
  - Confusional state [Unknown]

NARRATIVE: CASE EVENT DATE: 20210819
